FAERS Safety Report 6001999-2 (Version None)
Quarter: 2008Q4

REPORT INFORMATION
  Report Type: 
  Country: None (occurrence: None)
  Receive Date: 20081212
  Receipt Date: 20081209
  Transmission Date: 20090506
  Serious: Yes (Hospitalization)
  Sender: FDA-Public Use
  Company Number: SP02176

PATIENT
  Age: 63 Year
  Sex: Female

DRUGS (4)
  1. BALSALAZIDE DISODIUM [Suspect]
     Indication: COLITIS ULCERATIVE
  2. INFLIXIMAB [Suspect]
     Indication: COLITIS ULCERATIVE
  3. IBANDRONATE SODIUM [Concomitant]
  4. CONJUGATED ESTROGEN [Concomitant]

REACTIONS (4)
  - DRUG HYPERSENSITIVITY [None]
  - EOSINOPHILIC PNEUMONIA [None]
  - INTERSTITIAL LUNG DISEASE [None]
  - PLEURAL EFFUSION [None]
